FAERS Safety Report 7450231-1 (Version None)
Quarter: 2011Q2

REPORT INFORMATION
  Report Type: 
  Country: None (occurrence: None)
  Receive Date: 20110422
  Receipt Date: 20110310
  Transmission Date: 20111010
  Serious: Yes (Death)
  Sender: FDA-Public Use
  Company Number: DSU-2011-01981

PATIENT

DRUGS (1)
  1. OLMESARTAN MEDOXOMIL [Suspect]
     Indication: PROPHYLAXIS

REACTIONS (2)
  - CARDIOVASCULAR DISORDER [None]
  - MICROALBUMINURIA [None]
